FAERS Safety Report 6260342-4 (Version None)
Quarter: 2009Q3

REPORT INFORMATION
  Report Type: 
  Country: None (occurrence: None)
  Receive Date: 20090706
  Receipt Date: 20090623
  Transmission Date: 20100115
  Serious: Yes (Other)
  Sender: FDA-Public Use
  Company Number: MC200900232

PATIENT

DRUGS (1)
  1. ANGIOMAX [Suspect]

REACTIONS (3)
  - CORONARY ARTERY PERFORATION [None]
  - PROCEDURAL COMPLICATION [None]
  - THROMBOSIS [None]
